FAERS Safety Report 20928895 (Version 1)
Quarter: 2022Q2

REPORT INFORMATION
  Report Type: Spontaneous
  Country: PL (occurrence: PL)
  Receive Date: 20220607
  Receipt Date: 20220607
  Transmission Date: 20220721
  Serious: Yes (Death, Other)
  Sender: FDA-Public Use
  Company Number: PL-SUN PHARMACEUTICAL INDUSTRIES LTD-2022R1-339280

PATIENT
  Age: 59 Year

DRUGS (1)
  1. GEMCITABINE [Suspect]
     Active Substance: GEMCITABINE
     Indication: Breast cancer metastatic
     Dosage: 5 CYCLICAL, UNK
     Route: 065

REACTIONS (3)
  - Disease progression [Fatal]
  - Therapeutic product effect incomplete [Unknown]
  - Thrombocytopenia [Unknown]
